FAERS Safety Report 8272153-9 (Version None)
Quarter: 2012Q2

REPORT INFORMATION
  Report Type: 
  Country: None (occurrence: None)
  Receive Date: 20120410
  Receipt Date: 20120308
  Transmission Date: 20120825
  Serious: No
  Sender: FDA-Public Use
  Company Number: US-ASTRAZENECA-2011SE77462

PATIENT
  Age: 84 Year
  Sex: Male

DRUGS (14)
  1. VANDETANIB [Suspect]
     Route: 048
  2. HYDROCODONE BITARTRATE AND ACETAMINOPHEN [Concomitant]
  3. LEVOTHYROXINE SODIUM [Concomitant]
  4. LISINOPRIL [Concomitant]
  5. CALCITRIOL [Concomitant]
  6. VANDETANIB [Suspect]
     Indication: THYROID CANCER
     Route: 048
  7. CETIRIZINE HCL [Concomitant]
  8. COLESTIPOL HYDROCHLORIDE [Concomitant]
  9. OMEPRAZOLE [Concomitant]
  10. CALCIUM CARBONATE [Concomitant]
  11. DIPHENOXYLATE HCL + ATROPINE SULFATE [Concomitant]
  12. ACTOS [Concomitant]
  13. LOVASTATIN [Concomitant]
  14. FUROSEMIDE [Concomitant]

REACTIONS (5)
  - PAIN OF SKIN [None]
  - DIZZINESS [None]
  - HYPERAESTHESIA [None]
  - HAEMORRHAGIC DIATHESIS [None]
  - DIARRHOEA [None]
